FAERS Safety Report 11178007 (Version 1)
Quarter: 2015Q2

REPORT INFORMATION
  Report Type: Spontaneous
  Country: US (occurrence: None)
  Receive Date: 20150515
  Receipt Date: 20150515
  Transmission Date: 20150821
  Serious: Yes (Other)
  Sender: FDA-Public Use
  Company Number: 2015002349

PATIENT
  Sex: Female
  Weight: 82.5 kg

DRUGS (10)
  1. FLONASE [Concomitant]
     Active Substance: FLUTICASONE PROPIONATE
  2. METHYLPREDNISOLONE (METHYLPREDNISOLONE) [Suspect]
     Active Substance: METHYLPREDNISOLONE
     Indication: PRODUCT USED FOR UNKNOWN INDICATION
  3. CALCIUM (CALCIUM GLUCONATE) [Concomitant]
  4. CLOBETASOL [Concomitant]
     Active Substance: CLOBETASOL
  5. MVI (VITAMINS NOS) [Concomitant]
  6. ZETIA [Concomitant]
     Active Substance: EZETIMIBE
  7. BIOTIN [Concomitant]
     Active Substance: BIOTIN
  8. ZOLPIDEM TARTRATE. [Concomitant]
     Active Substance: ZOLPIDEM TARTRATE
  9. ESTRING (ESTRADIOL) [Concomitant]
  10. CIMZIA [Suspect]
     Active Substance: CERTOLIZUMAB PEGOL
     Indication: RHEUMATOID ARTHRITIS
     Dosage: 400 MG, EV 4 WEEKS, SUBCUTANEOUS
     Route: 058
     Dates: start: 201404, end: 201410

REACTIONS (3)
  - Rheumatoid arthritis [None]
  - Blood pressure increased [None]
  - Headache [None]

NARRATIVE: CASE EVENT DATE: 2014
